FAERS Safety Report 23382723 (Version 1)
Quarter: 2024Q1

REPORT INFORMATION
  Report Type: Spontaneous
  Country: US (occurrence: None)
  Receive Date: 20240108
  Receipt Date: 20240108
  Transmission Date: 20240410
  Serious: Yes (Death, Life-Threatening)
  Sender: FDA-Public Use
  Company Number: None

PATIENT
  Age: 39 Year
  Sex: Male
  Weight: 73.3 kg

DRUGS (1)
  1. THYMOGLOBULIN [Suspect]
     Active Substance: LAPINE T-LYMPHOCYTE IMMUNE GLOBULIN
     Indication: Renal transplant
     Dosage: FREQUENCY : DAILY;?
     Route: 042
     Dates: start: 20240101, end: 20240102

REACTIONS (7)
  - Renal transplant [None]
  - Blood pressure systolic increased [None]
  - Heart rate increased [None]
  - Oxygen saturation decreased [None]
  - Pulmonary oedema [None]
  - Acute respiratory distress syndrome [None]
  - Pneumonia [None]

NARRATIVE: CASE EVENT DATE: 20240102
